FAERS Safety Report 20858338 (Version 2)
Quarter: 2023Q1

REPORT INFORMATION
  Report Type: Spontaneous
  Country: CN (occurrence: CN)
  Receive Date: 20220521
  Receipt Date: 20230127
  Transmission Date: 20230418
  Serious: Yes (Other)
  Sender: FDA-Public Use
  Company Number: CN-NOVARTISPH-NVSC2022CN113951

PATIENT
  Age: 72 Year
  Sex: Male
  Weight: 60 kg

DRUGS (3)
  1. CARBAMAZEPINE [Suspect]
     Active Substance: CARBAMAZEPINE
     Indication: Post herpetic neuralgia
     Dosage: 0.1 G, QD
     Route: 048
     Dates: start: 20220509, end: 20220510
  2. THALIDOMIDE [Concomitant]
     Active Substance: THALIDOMIDE
     Indication: Post herpetic neuralgia
     Dosage: 50 MG, QD
     Route: 048
     Dates: start: 20220509, end: 20220510
  3. METHYLCOBALAMIN [Concomitant]
     Active Substance: METHYLCOBALAMIN
     Indication: Post herpetic neuralgia
     Dosage: 0.5 MG, TID
     Route: 048
     Dates: start: 20220509, end: 20220510

REACTIONS (6)
  - Loss of consciousness [Recovering/Resolving]
  - Somnolence [Recovering/Resolving]
  - Headache [Recovering/Resolving]
  - Swelling face [Unknown]
  - Skin laceration [Unknown]
  - Fall [Unknown]

NARRATIVE: CASE EVENT DATE: 20220510
